FAERS Safety Report 22946660 (Version 3)
Quarter: 2024Q3

REPORT INFORMATION
  Report Type: Report from Study
  Country: US (occurrence: US)
  Receive Date: 20230915
  Receipt Date: 20240826
  Transmission Date: 20241016
  Serious: No
  Sender: NOVARTIS
  Company Number: US-SANDOZ-SDZ2023US027242

PATIENT
  Sex: Female

DRUGS (4)
  1. ENTRESTO [Suspect]
     Active Substance: SACUBITRIL\VALSARTAN
     Indication: Product used for unknown indication
     Dosage: 24/26 MG, BID
     Route: 048
  2. TRAMADOL [Suspect]
     Active Substance: TRAMADOL\TRAMADOL HYDROCHLORIDE
     Indication: Product used for unknown indication
     Dosage: UNK
     Route: 065
  3. VITAMIN B12 [Suspect]
     Active Substance: CYANOCOBALAMIN
     Indication: Product used for unknown indication
     Dosage: UNK
     Route: 065
  4. CITICOLINE\NIMODIPINE [Suspect]
     Active Substance: CITICOLINE\NIMODIPINE
     Indication: Product used for unknown indication
     Route: 065

REACTIONS (5)
  - Memory impairment [Recovered/Resolved]
  - Therapeutic response unexpected [Unknown]
  - Nerve injury [Unknown]
  - Product use complaint [Unknown]
  - Cardiac disorder [Unknown]
